FAERS Safety Report 16601851 (Version 2)
Quarter: 2019Q3

REPORT INFORMATION
  Report Type: Spontaneous
  Country: CL (occurrence: CL)
  Receive Date: 20190719
  Receipt Date: 20190822
  Transmission Date: 20191004
  Serious: Yes (Other)
  Sender: FDA-Public Use
  Company Number: CL-BIOMARINAP-CL-2019-124743

PATIENT
  Age: 17 Year
  Sex: Male

DRUGS (1)
  1. BRINEURA [Suspect]
     Active Substance: CERLIPONASE ALFA
     Indication: NEURONAL CEROID LIPOFUSCINOSIS
     Route: 065

REACTIONS (3)
  - Muscle contractions involuntary [Unknown]
  - Seizure [Unknown]
  - Loss of consciousness [Unknown]

NARRATIVE: CASE EVENT DATE: 20190713
